FAERS Safety Report 16027477 (Version 1)
Quarter: 2019Q1

REPORT INFORMATION
  Report Type: Report from Study
  Country: None (occurrence: CO)
  Receive Date: 20190304
  Receipt Date: 20190304
  Transmission Date: 20190418
  Serious: Yes (Other)
  Sender: FDA-Public Use
  Company Number: CO-ABBVIE-19K-036-2688373-00

PATIENT
  Age: 44 Year
  Sex: Female
  Weight: 87 kg

DRUGS (2)
  1. MESALAZINE [Concomitant]
     Active Substance: MESALAMINE
     Indication: PRODUCT USED FOR UNKNOWN INDICATION
  2. HUMIRA [Suspect]
     Active Substance: ADALIMUMAB
     Indication: ANKYLOSING SPONDYLITIS
     Route: 058
     Dates: start: 20180217, end: 20190118

REACTIONS (7)
  - Pain [Recovering/Resolving]
  - Localised infection [Recovering/Resolving]
  - Pyrexia [Recovering/Resolving]
  - Obstruction [Recovering/Resolving]
  - Malaise [Recovering/Resolving]
  - Erythema [Recovering/Resolving]
  - Back pain [Recovering/Resolving]

NARRATIVE: CASE EVENT DATE: 201812
